FAERS Safety Report 5015581-7 (Version None)
Quarter: 2006Q2

REPORT INFORMATION
  Report Type: 
  Country: None (occurrence: None)
  Receive Date: 20060601
  Receipt Date: 20050830
  Transmission Date: 20061013
  Serious: Yes (Other)
  Sender: FDA-Public Use
  Company Number: BR-ROCHE-416212

PATIENT
  Sex: Male
  Weight: 3.2 kg

DRUGS (1)
  1. ROACUTAN [Suspect]
     Indication: ACNE
     Dates: start: 20050715, end: 20050829

REACTIONS (3)
  - DRUG EXPOSURE DURING PREGNANCY [None]
  - NO ADVERSE EFFECT [None]
  - NORMAL NEWBORN [None]
